FAERS Safety Report 16321733 (Version 5)
Quarter: 2020Q2

REPORT INFORMATION
  Report Type: Spontaneous
  Country: BE (occurrence: BE)
  Receive Date: 20190516
  Receipt Date: 20200527
  Transmission Date: 20200713
  Serious: Yes (Death, Hospitalization)
  Sender: FDA-Public Use
  Company Number: PHHY2019BE111492

PATIENT
  Age: 55 Year
  Sex: Female

DRUGS (6)
  1. L-THYROXINE [Concomitant]
     Active Substance: LEVOTHYROXINE
     Indication: HYPOTHYROIDISM
     Dosage: 125 UG, QD
     Route: 048
     Dates: end: 201903
  2. MAGNESIUM [Concomitant]
     Active Substance: MAGNESIUM
     Indication: PRODUCT USED FOR UNKNOWN INDICATION
     Dosage: 1 DF, QD
     Route: 048
  3. TEMOZOLOMIDE. [Concomitant]
     Active Substance: TEMOZOLOMIDE
     Indication: PRODUCT USED FOR UNKNOWN INDICATION
     Dosage: UNK
     Route: 065
  4. LOMUSTINE. [Concomitant]
     Active Substance: LOMUSTINE
     Indication: PRODUCT USED FOR UNKNOWN INDICATION
     Dosage: UNK
     Route: 065
  5. GILENYA [Suspect]
     Active Substance: FINGOLIMOD HYDROCHLORIDE
     Indication: MULTIPLE SCLEROSIS
     Dosage: 1 DF, QD
     Route: 048
     Dates: start: 201402, end: 20181005
  6. GILENYA [Suspect]
     Active Substance: FINGOLIMOD HYDROCHLORIDE
     Dosage: 0.5 MG
     Route: 065

REACTIONS (13)
  - Hemiparesis [Unknown]
  - Sensory disturbance [Unknown]
  - Nystagmus [Unknown]
  - Glioblastoma [Fatal]
  - Brain oedema [Fatal]
  - Drug ineffective [Unknown]
  - Central nervous system lesion [Fatal]
  - Lymphopenia [Unknown]
  - Ataxia [Unknown]
  - Hypoaesthesia [Unknown]
  - Peripheral sensory neuropathy [Fatal]
  - Language disorder [Fatal]
  - Dysarthria [Unknown]

NARRATIVE: CASE EVENT DATE: 20181003
